FAERS Safety Report 18883446 (Version 1)
Quarter: 2021Q1

REPORT INFORMATION
  Report Type: Spontaneous
  Country: US (occurrence: US)
  Receive Date: 20210211
  Receipt Date: 20210211
  Transmission Date: 20210420
  Serious: No
  Sender: FDA-Public Use
  Company Number: None

PATIENT
  Age: 45 Year
  Sex: Female
  Weight: 94.5 kg

DRUGS (4)
  1. CALCIUM [Concomitant]
     Active Substance: CALCIUM
  2. MUTILVITAMIN [Concomitant]
  3. LEXAPRO [Suspect]
     Active Substance: ESCITALOPRAM OXALATE
     Indication: ANXIETY DISORDER
     Dosage: ?          QUANTITY:1 CAPSULE(S);?
     Dates: start: 20210105
  4. MAGNESIUM [Concomitant]
     Active Substance: MAGNESIUM

REACTIONS (6)
  - Crying [None]
  - Panic reaction [None]
  - Product quality issue [None]
  - Anxiety [None]
  - Suicidal ideation [None]
  - Drug withdrawal syndrome [None]

NARRATIVE: CASE EVENT DATE: 20210110
